FAERS Safety Report 6045263-4 (Version None)
Quarter: 2009Q1

REPORT INFORMATION
  Report Type: 
  Country: None (occurrence: None)
  Receive Date: 20090121
  Receipt Date: 20081220
  Transmission Date: 20090719
  Serious: No
  Sender: FDA-Public Use
  Company Number: US-BAYER-200841516NA

PATIENT
  Age: 46 Year
  Sex: Female

DRUGS (2)
  1. YAZ [Suspect]
     Indication: CONTRACEPTION
     Route: 048
     Dates: start: 20081101
  2. COPPER IUD NOS [Concomitant]

REACTIONS (3)
  - MENOMETRORRHAGIA [None]
  - NO ADVERSE EVENT [None]
  - WEIGHT INCREASED [None]
